FAERS Safety Report 6608835-1 (Version None)
Quarter: 2010Q1

REPORT INFORMATION
  Report Type: 
  Country: None (occurrence: None)
  Receive Date: 20100301
  Receipt Date: 20100215
  Transmission Date: 20100710
  Serious: Yes (Other)
  Sender: FDA-Public Use
  Company Number: DE-MYLANLABS-2010S1002330

PATIENT
  Age: 11 Year
  Sex: Male
  Weight: 27 kg

DRUGS (14)
  1. BACLOFEN [Suspect]
     Indication: MUSCLE SPASTICITY
     Dosage: 2000 MCG/ML BACLOFEN 200 MCG/DAY
     Route: 037
  2. BACLOFEN [Suspect]
     Dosage: 2000 MCG/ML BACLOFEN 150 MCG/DAY
     Route: 037
  3. NEURONTIN [Concomitant]
     Route: 065
  4. NACOM [Concomitant]
     Route: 065
  5. THIOPENTAL SODIUM [Concomitant]
     Indication: INDUCTION OF ANAESTHESIA
     Route: 065
  6. REMIFENTANIL [Concomitant]
     Indication: INDUCTION AND MAINTENANCE OF ANAESTHESIA
     Dosage: 0.37 MCG/KG/MIN
     Route: 065
  7. PROPOFOL [Concomitant]
     Indication: MAINTENANCE OF ANAESTHESIA
     Dosage: 5.5 MG/KG/H
     Route: 042
  8. PROPOFOL [Concomitant]
     Dosage: 6.3 MG/KG/H PROPOFOL
     Route: 042
  9. REMIFENTANIL [Concomitant]
     Indication: MAINTENANCE OF ANAESTHESIA
     Dosage: 0.5 MCG/KG/MIN
     Route: 042
  10. PARACETAMOL [Concomitant]
     Indication: POSTOPERATIVE ANALGESIA
     Route: 042
  11. PIRITRAMIDE [Concomitant]
     Indication: POSTOPERATIVE ANALGESIA
     Route: 065
  12. GRANISETRON [Concomitant]
     Indication: PROCEDURAL VOMITING
     Route: 065
  13. FOSFOMYCIN [Concomitant]
     Indication: ANTIBIOTIC PROPHYLAXIS
     Route: 065
  14. ATROPINE [Concomitant]
     Indication: BRADYCARDIA
     Route: 065

REACTIONS (4)
  - BRADYCARDIA [None]
  - HYPOTENSION [None]
  - HYPOTHERMIA [None]
  - RESPIRATORY DEPRESSION [None]
